FAERS Safety Report 4828105-1 (Version None)
Quarter: 2005Q4

REPORT INFORMATION
  Report Type: 
  Country: None (occurrence: None)
  Receive Date: 20051114
  Receipt Date: 20051114
  Transmission Date: 20060501
  Serious: Yes (Other)
  Sender: FDA-Public Use
  Company Number: None

PATIENT
  Age: 90 Year
  Sex: Female

DRUGS (5)
  1. LEVETIRACETAM [Suspect]
     Indication: CONVULSION
     Dosage: 1000 MG BID PO
     Route: 048
     Dates: start: 20050803, end: 20050818
  2. APAP TAB [Concomitant]
  3. ASPIRIN [Concomitant]
  4. DONEPEZIL HCL [Concomitant]
  5. ENALAPRIL [Concomitant]

REACTIONS (2)
  - LEUKOPENIA [None]
  - NEUTROPENIA [None]
